FAERS Safety Report 5847973-8 (Version None)
Quarter: 2008Q3

REPORT INFORMATION
  Report Type: 
  Country: None (occurrence: None)
  Receive Date: 20080814
  Receipt Date: 20080731
  Transmission Date: 20090109
  Serious: Yes (Disabling)
  Sender: FDA-Public Use
  Company Number: MK-6022719

PATIENT
  Age: 27 Year
  Sex: Female

DRUGS (5)
  1. SERTRALINE [Suspect]
     Indication: DEPRESSION
     Dosage: 50 MG; DAILY ORAL, 50 MG; TABLET; ORAL; DAILY
     Route: 048
     Dates: start: 20060303, end: 20060401
  2. AKARIN (CITALOPRAM) [Suspect]
     Indication: DRUG USE FOR UNKNOWN INDICATION
     Dates: start: 20050201, end: 20060201
  3. AKARIN (CITALOPRAM) [Suspect]
     Indication: DRUG USE FOR UNKNOWN INDICATION
     Dates: start: 20050201, end: 20060501
  4. AKARIN (CITALOPRAM) [Suspect]
     Indication: DRUG USE FOR UNKNOWN INDICATION
     Dates: end: 20060501
  5. CLONAZEPAM [Suspect]
     Indication: DRUG USE FOR UNKNOWN INDICATION

REACTIONS (3)
  - FATIGUE [None]
  - MYALGIA [None]
  - MYOCLONUS [None]
